FAERS Safety Report 21929078 (Version 1)
Quarter: 2023Q1

REPORT INFORMATION
  Report Type: Spontaneous
  Country: PL (occurrence: PL)
  Receive Date: 20230131
  Receipt Date: 20230131
  Transmission Date: 20230417
  Serious: Yes (Hospitalization)
  Sender: FDA-Public Use
  Company Number: PL-BIOGEN-2023BI01183824

PATIENT
  Age: 19 Year

DRUGS (3)
  1. TECFIDERA [Suspect]
     Active Substance: DIMETHYL FUMARATE
     Indication: Multiple sclerosis
     Route: 050
     Dates: start: 20180627
  2. VITAMIN D3 [Concomitant]
     Active Substance: CHOLECALCIFEROL
     Indication: Product used for unknown indication
     Dosage: ESSENTIALE FORTE 2 X 1 VITAMIN D3 4000U/D
     Route: 050
     Dates: start: 20210517
  3. Fresubin HP [Concomitant]
     Indication: Product used for unknown indication
     Dosage: FRESUBIN HP 2KCAL 1000ML IN THE FORM OF BOLUSES (5X200ML)
     Route: 050
     Dates: start: 20220621

REACTIONS (6)
  - Multiple sclerosis relapse [Unknown]
  - Erythema [Unknown]
  - Obesity [Unknown]
  - Aspartate aminotransferase increased [Unknown]
  - Alanine aminotransferase increased [Unknown]
  - Drug ineffective [Unknown]
